FAERS Safety Report 10088537 (Version 1)
Quarter: 2014Q2

REPORT INFORMATION
  Report Type: Spontaneous
  Country: US (occurrence: US)
  Receive Date: 20140421
  Receipt Date: 20140421
  Transmission Date: 20141212
  Serious: No
  Sender: FDA-Public Use
  Company Number: US-BIOGENIDEC-2014BI032121

PATIENT
  Age: 17 Year
  Sex: Female

DRUGS (1)
  1. TECFIDERA [Suspect]
     Indication: MULTIPLE SCLEROSIS
     Route: 048
     Dates: start: 20140326

REACTIONS (4)
  - Off label use [Unknown]
  - Dizziness [Not Recovered/Not Resolved]
  - Hot flush [Recovered/Resolved]
  - Nausea [Not Recovered/Not Resolved]
